FAERS Safety Report 5480414-1 (Version None)
Quarter: 2007Q4

REPORT INFORMATION
  Report Type: 
  Country: None (occurrence: None)
  Receive Date: 20071004
  Receipt Date: 20071004
  Transmission Date: 20080405
  Serious: Yes (Hospitalization)
  Sender: FDA-Public Use
  Company Number: None

PATIENT
  Sex: Male
  Weight: 59.7 kg

DRUGS (3)
  1. FLUOROURACIL [Suspect]
     Indication: LARYNGEAL CANCER
     Dosage: 600MG/M2 IV QD
     Route: 042
     Dates: start: 20070923, end: 20070928
  2. HYDREA [Suspect]
     Indication: LARYNGEAL CANCER
     Dosage: 500MG PO BID
     Route: 048
     Dates: start: 20070923, end: 20070928
  3. CETUXIMAB [Suspect]
     Dosage: QWEEK 250MG/M2 IV: 9/24/07
     Route: 042
     Dates: start: 20070924

REACTIONS (3)
  - INADEQUATE ANALGESIA [None]
  - MUCOSAL INFLAMMATION [None]
  - ORAL INTAKE REDUCED [None]
